FAERS Safety Report 16361167 (Version 1)
Quarter: 2019Q2

REPORT INFORMATION
  Report Type: Spontaneous
  Country: ES (occurrence: ES)
  Receive Date: 20190528
  Receipt Date: 20190528
  Transmission Date: 20190711
  Serious: Yes (Hospitalization)
  Sender: FDA-Public Use
  Company Number: ES-AMGEN-ESPSP2019081722

PATIENT

DRUGS (1)
  1. PROLIA [Suspect]
     Active Substance: DENOSUMAB
     Indication: OSTEOPOROSIS
     Dosage: UNK 2 DOSE (ONE DOSE EVERY 6 MONTHS)
     Route: 058

REACTIONS (7)
  - Blood calcium abnormal [Recovering/Resolving]
  - Tremor [Recovering/Resolving]
  - Paraesthesia [Recovering/Resolving]
  - Muscle spasms [Recovering/Resolving]
  - Asthenia [Recovering/Resolving]
  - Gait disturbance [Recovering/Resolving]
  - Hypocalcaemia [Recovering/Resolving]
